FAERS Safety Report 21957734 (Version 2)
Quarter: 2023Q4

REPORT INFORMATION
  Report Type: Spontaneous
  Country: FR (occurrence: FR)
  Receive Date: 20230206
  Receipt Date: 20231005
  Transmission Date: 20240110
  Serious: Yes (Death)
  Sender: FDA-Public Use
  Company Number: None

PATIENT
  Age: 78 Year
  Sex: Male
  Weight: 79.1 kg

DRUGS (10)
  1. MYLOTARG [Suspect]
     Active Substance: GEMTUZUMAB OZOGAMICIN
     Indication: Acute myeloid leukaemia
     Dosage: 5 MG, CYCLIC (DAYS 1, 4, 7)
     Route: 042
     Dates: start: 20230110, end: 20230110
  2. BICALAN [SODIUM BICARBONATE] [Concomitant]
     Dosage: 1 MOUTHWASH X EVERY 4 HOURS, AT MIDNIGHT, 4 AM, 8 AM, 12 PM, 4 PM
  3. NOXAFIL [Concomitant]
     Active Substance: POSACONAZOLE
     Dosage: 300 MG, 1X/DAY, EVENING
  4. POTASSIUM CHLORIDE [Concomitant]
     Active Substance: POTASSIUM CHLORIDE
     Dosage: 2 CAPSULES, MORNING, NOON, EVENING,
  5. VENETOCLAX [Concomitant]
     Active Substance: VENETOCLAX
     Dosage: 1 TABLET, EVENING
  6. VALACYCLOVIR HYDROCHLORIDE [Concomitant]
     Active Substance: VALACYCLOVIR HYDROCHLORIDE
     Dosage: 1 TABLET, MORNING, EVENING
  7. TRAMADOL [Concomitant]
     Active Substance: TRAMADOL\TRAMADOL HYDROCHLORIDE
     Dosage: 50 MG, IF NECESSARY, MAX PER 24 HOURS: 200 MG, INTERVAL BETWEEN TWO DOSES: 06:00.
  8. RACECADOTRIL [Concomitant]
     Active Substance: RACECADOTRIL
     Dosage: 1 DF, AS NEEDED
  9. METOCLOPRAMIDE [Concomitant]
     Active Substance: METOCLOPRAMIDE
     Dosage: 1 DF, AS NEEDED
  10. MONTMORILLONITE [Concomitant]
     Active Substance: MONTMORILLONITE
     Dosage: 1 SACHET, IF NECESSARY

REACTIONS (1)
  - Tumour lysis syndrome [Fatal]

NARRATIVE: CASE EVENT DATE: 20230112
